FAERS Safety Report 14851941 (Version 1)
Quarter: 2018Q2

REPORT INFORMATION
  Report Type: Spontaneous
  Country: TW (occurrence: TW)
  Receive Date: 20180507
  Receipt Date: 20180507
  Transmission Date: 20180711
  Serious: Yes (Death, Life-Threatening, Other)
  Sender: FDA-Public Use
  Company Number: TW-ROCHE-2116979

PATIENT
  Age: 30 Year
  Sex: Female
  Weight: 37.8 kg

DRUGS (3)
  1. RIVOTRIL [Suspect]
     Active Substance: CLONAZEPAM
     Indication: EPILEPSY
     Route: 048
  2. DIAMOX SEQUELS [Concomitant]
     Active Substance: ACETAZOLAMIDE
     Indication: EPILEPSY
     Route: 048
  3. TEGRETOL XR [Concomitant]
     Active Substance: CARBAMAZEPINE
     Indication: EPILEPSY
     Route: 048

REACTIONS (5)
  - Brain death [Fatal]
  - Hypoxia [Unknown]
  - Respiratory distress [Unknown]
  - Choking [Unknown]
  - Brain oedema [Unknown]

NARRATIVE: CASE EVENT DATE: 20120429
